FAERS Safety Report 16756351 (Version 1)
Quarter: 2019Q3

REPORT INFORMATION
  Report Type: Spontaneous
  Country: SE (occurrence: SE)
  Receive Date: 20190829
  Receipt Date: 20190829
  Transmission Date: 20191005
  Serious: Yes (Death)
  Sender: FDA-Public Use
  Company Number: SE-TEVA-2019-SE-1098133

PATIENT
  Age: 74 Year
  Sex: Female

DRUGS (3)
  1. LOSEC [Concomitant]
     Active Substance: OMEPRAZOLE
  2. EPIRUBICIN [Suspect]
     Active Substance: EPIRUBICIN
     Indication: TRIPLE NEGATIVE BREAST CANCER
     Dosage: 105 MILLIGRAM
     Route: 042
     Dates: start: 20190524, end: 20190705
  3. CYCLOPHOSPHAMIDE (ANHYDROUS) [Suspect]
     Active Substance: CYCLOPHOSPHAMIDE
     Indication: TRIPLE NEGATIVE BREAST CANCER
     Dosage: 1050 MILLIGRAM
     Route: 042
     Dates: start: 20190524, end: 20190705

REACTIONS (4)
  - Pulmonary fibrosis [Fatal]
  - Multiple organ dysfunction syndrome [Fatal]
  - Cerebral artery embolism [Fatal]
  - Acute myocardial infarction [Fatal]

NARRATIVE: CASE EVENT DATE: 20190717
